FAERS Safety Report 5372084-8 (Version None)
Quarter: 2007Q2

REPORT INFORMATION
  Report Type: 
  Country: None (occurrence: None)
  Receive Date: 20070627
  Receipt Date: 20070615
  Transmission Date: 20071010
  Serious: Yes (Death, Hospitalization)
  Sender: FDA-Public Use
  Company Number: NZ-ROCHE-501055

PATIENT
  Age: 75 Year
  Sex: Female
  Weight: 78.2 kg

DRUGS (15)
  1. CAPECITABINE [Suspect]
     Indication: COLORECTAL CANCER
     Dosage: BD FOR 7 DAYS/2 WEEKLY.
     Route: 048
     Dates: start: 20070521
  2. BEVACIZUMAB [Suspect]
     Indication: COLORECTAL CANCER
     Dosage: DOSAGE FORM WAS REPORTED AS SOLUTION FOR INFUSION.
     Route: 042
     Dates: start: 20070521
  3. OXALIPLATIN [Suspect]
     Indication: COLORECTAL CANCER
     Dosage: DOSAGE FORM WAS REPORTED AS SOLUTION FOR INFUSION.
     Route: 042
     Dates: start: 20070521
  4. ASPIRIN [Concomitant]
     Route: 048
     Dates: start: 19960101, end: 20070614
  5. CALCIUM SANDOZ [Concomitant]
     Route: 048
     Dates: start: 20030101, end: 20070614
  6. DURIDE [Concomitant]
     Route: 048
     Dates: start: 19940101, end: 20070614
  7. LEVOTHYROXINE SODIUM [Concomitant]
     Route: 048
     Dates: start: 20020101, end: 20070614
  8. LIPEX [Concomitant]
     Route: 048
     Dates: start: 19940101, end: 20070614
  9. LOPERAMIDE HCL [Concomitant]
     Dates: end: 20070614
  10. CODEINE PHOSPHATE [Concomitant]
     Dates: end: 20070614
  11. METOCLOPRAMIDE [Concomitant]
     Dates: start: 20070612, end: 20070614
  12. NOZINAN [Concomitant]
     Dates: end: 20070614
  13. CYCLIZINE [Concomitant]
     Dates: end: 20070612
  14. CLEXANE [Concomitant]
  15. ANTIBIOTIC NOS [Concomitant]
     Route: 042

REACTIONS (2)
  - DIARRHOEA [None]
  - SEPTIC SHOCK [None]
